FAERS Safety Report 5665102-0 (Version None)
Quarter: 2008Q1

REPORT INFORMATION
  Report Type: 
  Country: None (occurrence: None)
  Receive Date: 20080314
  Receipt Date: 20080305
  Transmission Date: 20080703
  Serious: Yes (Other)
  Sender: FDA-Public Use
  Company Number: BE-ABBOTT-08P-013-0441069-00

PATIENT
  Sex: Male

DRUGS (13)
  1. NORVIR [Suspect]
     Indication: HIV INFECTION
     Dates: start: 20071101, end: 20071219
  2. NORVIR [Suspect]
     Dates: start: 20070530, end: 20070810
  3. NORVIR [Suspect]
     Dates: start: 20071101, end: 20071219
  4. FOSAMPRENAVIR [Suspect]
     Indication: HIV INFECTION
     Dates: start: 20071101, end: 20071219
  5. FOSAMPRENAVIR [Suspect]
     Dates: start: 20070530, end: 20070810
  6. ABACAVIR SULFATE/LAMIVUDINE [Concomitant]
     Indication: HIV INFECTION
     Dates: start: 20070530, end: 20070810
  7. ABACAVIR SULFATE/LAMIVUDINE [Concomitant]
     Dates: start: 20071101, end: 20080221
  8. AZITHROMYCIN [Concomitant]
     Indication: DRUG USE FOR UNKNOWN INDICATION
  9. RIFABUTIN [Concomitant]
     Indication: DRUG USE FOR UNKNOWN INDICATION
  10. LEVOFLOXACIN [Concomitant]
     Indication: DRUG USE FOR UNKNOWN INDICATION
  11. ETHAMBUTOL DIHYDROCHLORIDE [Concomitant]
     Indication: DRUG USE FOR UNKNOWN INDICATION
  12. DAPSONE [Concomitant]
     Indication: DRUG USE FOR UNKNOWN INDICATION
  13. NEVIRAPINE [Concomitant]
     Indication: HIV INFECTION
     Dates: start: 20071220, end: 20080221

REACTIONS (12)
  - ABDOMINAL PAIN [None]
  - ANOGENITAL WARTS [None]
  - CELL-MEDIATED IMMUNE DEFICIENCY [None]
  - DIARRHOEA [None]
  - DRUG RESISTANCE [None]
  - ECHOGRAPHY ABNORMAL [None]
  - FEELING ABNORMAL [None]
  - KAPOSI'S SARCOMA [None]
  - LYMPHADENOPATHY [None]
  - NEOPLASM MALIGNANT [None]
  - PSORIASIS [None]
  - VIRAL LOAD INCREASED [None]
